FAERS Safety Report 13953058 (Version 1)
Quarter: 2017Q3

REPORT INFORMATION
  Report Type: Spontaneous
  Country: US (occurrence: US)
  Receive Date: 20170911
  Receipt Date: 20170911
  Transmission Date: 20171128
  Serious: No
  Sender: FDA-Public Use
  Company Number: US-ASTRAZENECA-2017SE91828

PATIENT
  Sex: Female

DRUGS (1)
  1. NEXIUM 24HR [Suspect]
     Active Substance: ESOMEPRAZOLE MAGNESIUM
     Indication: ULCER
     Dosage: 20 MG, 4X/DAY(2 IN MORNING AND 2 AT NIGHT)
     Route: 048

REACTIONS (3)
  - Myalgia [Unknown]
  - Gait disturbance [Unknown]
  - Intentional product use issue [Unknown]
